FAERS Safety Report 6940121-2 (Version None)
Quarter: 2010Q3

REPORT INFORMATION
  Report Type: 
  Country: None (occurrence: None)
  Receive Date: 20100825
  Receipt Date: 20100823
  Transmission Date: 20110219
  Serious: Yes (Other)
  Sender: FDA-Public Use
  Company Number: US-ASTRAZENECA-2006UW07970

PATIENT
  Age: 15001 Day
  Sex: Female
  Weight: 68 kg

DRUGS (9)
  1. SEROQUEL [Suspect]
     Indication: DEPRESSION
     Route: 048
     Dates: start: 20040101, end: 20060501
  2. SEROQUEL [Suspect]
     Indication: AFFECTIVE DISORDER
     Route: 048
     Dates: start: 20040101, end: 20060501
  3. SEROQUEL [Suspect]
     Indication: SLEEP DISORDER
     Route: 048
     Dates: start: 20040101, end: 20060501
  4. SEROQUEL [Suspect]
     Indication: INSOMNIA
     Route: 048
     Dates: start: 20040101, end: 20060501
  5. SEROQUEL [Suspect]
     Dosage: 50 MG TO 40 MG
     Route: 048
     Dates: start: 20040101, end: 20060501
  6. SEROQUEL [Suspect]
     Dosage: 50 MG TO 40 MG
     Route: 048
     Dates: start: 20040101, end: 20060501
  7. SEROQUEL [Suspect]
     Dosage: 50 MG TO 40 MG
     Route: 048
     Dates: start: 20040101, end: 20060501
  8. SEROQUEL [Suspect]
     Dosage: 50 MG TO 40 MG
     Route: 048
     Dates: start: 20040101, end: 20060501
  9. PAXIL [Concomitant]

REACTIONS (6)
  - CHEST PAIN [None]
  - DIABETES MELLITUS [None]
  - EAR INFECTION [None]
  - NECK INJURY [None]
  - NEUROPATHY PERIPHERAL [None]
  - SOFT TISSUE INJURY [None]
